FAERS Safety Report 23580672 (Version 2)
Quarter: 2024Q2

REPORT INFORMATION
  Report Type: Spontaneous
  Country: CA (occurrence: None)
  Receive Date: 20240229
  Receipt Date: 20240403
  Transmission Date: 20240716
  Serious: Yes (Other)
  Sender: FDA-Public Use
  Company Number: 2024A029357

PATIENT
  Age: 29608 Day
  Sex: Male

DRUGS (1)
  1. BREZTRI [Suspect]
     Active Substance: BUDESONIDE\FORMOTEROL\GLYCOPYRROLATE
     Indication: Dyspnoea
     Route: 055
     Dates: start: 20240126

REACTIONS (5)
  - Acute pulmonary oedema [Unknown]
  - Dizziness [Unknown]
  - Drug ineffective [Unknown]
  - Off label use [Unknown]
  - Product after taste [Unknown]

NARRATIVE: CASE EVENT DATE: 20240126
